FAERS Safety Report 6180326-4 (Version None)
Quarter: 2009Q2

REPORT INFORMATION
  Report Type: 
  Country: None (occurrence: None)
  Receive Date: 20090504
  Receipt Date: 20090504
  Transmission Date: 20091009
  Serious: No
  Sender: FDA-Public Use
  Company Number: None

PATIENT
  Sex: Female

DRUGS (1)
  1. BACTRIM DS [Suspect]
     Dosage: 800/160 MG 1 TAB TWICE DAILY ORAL
     Route: 048
     Dates: start: 20090421

REACTIONS (4)
  - FEELING HOT [None]
  - OEDEMA PERIPHERAL [None]
  - PAIN [None]
  - SKIN DISCOLOURATION [None]
